FAERS Safety Report 24011597 (Version 2)
Quarter: 2024Q2

REPORT INFORMATION
  Report Type: Spontaneous
  Country: US (occurrence: US)
  Receive Date: 20240625
  Receipt Date: 20240628
  Transmission Date: 20240716
  Serious: Yes (Other)
  Sender: FDA-Public Use
  Company Number: US-BRISTOL-MYERS SQUIBB COMPANY-2024-101411

PATIENT
  Age: 68 Year
  Sex: Male

DRUGS (1)
  1. REVLIMID [Suspect]
     Active Substance: LENALIDOMIDE
     Indication: Plasma cell myeloma
     Dosage: DAILY FOR  21 DAYS AND THEN 7 DAYS OFF
     Route: 048
     Dates: end: 202312

REACTIONS (6)
  - Anaemia [Unknown]
  - Pathological fracture [Unknown]
  - Medical device pain [Unknown]
  - Asthenia [Unknown]
  - Nausea [Unknown]
  - Sleep disorder [Unknown]
